FAERS Safety Report 16086964 (Version 1)
Quarter: 2019Q1

REPORT INFORMATION
  Report Type: Spontaneous
  Country: US (occurrence: US)
  Receive Date: 20190318
  Receipt Date: 20190318
  Transmission Date: 20190418
  Serious: No
  Sender: FDA-Public Use
  Company Number: US-SHIRE-US201838385

PATIENT
  Age: 57 Year
  Sex: Female

DRUGS (1)
  1. NATPARA (PARATHYROID HORMONE) [Suspect]
     Active Substance: PARATHYROID HORMONE
     Indication: HYPOPARATHYROIDISM
     Dosage: 100 ?G, 1X/DAY:QD
     Route: 058
     Dates: start: 20180503

REACTIONS (5)
  - Inappropriate schedule of product administration [Recovered/Resolved]
  - Blood calcium decreased [Unknown]
  - Hypoaesthesia [Unknown]
  - Paraesthesia [Unknown]
  - Muscle spasms [Unknown]

NARRATIVE: CASE EVENT DATE: 20180926
